FAERS Safety Report 10589644 (Version 2)
Quarter: 2014Q4

REPORT INFORMATION
  Report Type: Spontaneous
  Country: CZ (occurrence: None)
  Receive Date: 20141114
  Receipt Date: 20141229
  Transmission Date: 20150529
  Serious: Yes (Death, Hospitalization)
  Sender: FDA-Public Use
  Company Number: 2014CZ0470

PATIENT
  Sex: Male

DRUGS (1)
  1. ORFADIN [Suspect]
     Active Substance: NITISINONE
     Indication: TYROSINAEMIA
     Dosage: (0.5 MG, 1 IN 1 WK)
     Dates: start: 201111

REACTIONS (4)
  - Immune system disorder [None]
  - Sepsis [None]
  - Liver transplant [None]
  - Complications of transplanted liver [None]

NARRATIVE: CASE EVENT DATE: 2013
